FAERS Safety Report 25648582 (Version 1)
Quarter: 2025Q3

REPORT INFORMATION
  Report Type: Spontaneous
  Country: EU (occurrence: EU)
  Receive Date: 20250806
  Receipt Date: 20250806
  Transmission Date: 20251021
  Serious: Yes (Hospitalization, Other)
  Sender: MSN LABORATORIES PRIVATE LIMITED
  Company Number: EU-EMA-DD-20250715-7482707-150131

PATIENT

DRUGS (1)
  1. OLMESARTAN MEDOXOMIL [Suspect]
     Active Substance: OLMESARTAN MEDOXOMIL
     Indication: Hypertension
     Route: 065

REACTIONS (4)
  - Enterocolitis [Recovered/Resolved]
  - Hypotension [Unknown]
  - Renal disorder [Unknown]
  - Diarrhoea [Unknown]
